FAERS Safety Report 16548523 (Version 1)
Quarter: 2019Q3

REPORT INFORMATION
  Report Type: Spontaneous
  Country: ES (occurrence: ES)
  Receive Date: 20190709
  Receipt Date: 20190709
  Transmission Date: 20191004
  Serious: Yes (Hospitalization)
  Sender: FDA-Public Use
  Company Number: PHHY2019ES157267

PATIENT
  Age: 77 Year
  Sex: Male

DRUGS (6)
  1. PARACETAMOL [Suspect]
     Active Substance: ACETAMINOPHEN
     Indication: PYREXIA
     Dosage: 1 G, Q8H
     Route: 042
     Dates: start: 20190306, end: 20190403
  2. DAPTOMYCIN. [Suspect]
     Active Substance: DAPTOMYCIN
     Indication: ENDOCARDITIS
     Dosage: 1250 MG, QD
     Route: 042
     Dates: start: 20190306
  3. OMEPRAZOL [Suspect]
     Active Substance: OMEPRAZOLE
     Indication: GASTRITIS PROPHYLAXIS
     Dosage: 40 MG, QD
     Route: 042
     Dates: start: 20190306, end: 20190403
  4. CHLOROPHYLLIN [Suspect]
     Active Substance: SODIUM COPPER CHLOROPHYLLIN
     Indication: ENDOCARDITIS
     Dosage: 2 G, Q4H
     Route: 042
     Dates: start: 20190306, end: 20190404
  5. METAMIZOLE [Suspect]
     Active Substance: METAMIZOLE
     Indication: PYREXIA
     Dosage: 2 G, Q6H
     Route: 042
     Dates: start: 20190308, end: 20190403
  6. GENTAMICINA [Suspect]
     Active Substance: GENTAMICIN
     Indication: ENDOCARDITIS
     Dosage: 360 MG, QD
     Route: 042
     Dates: start: 20190306, end: 20190328

REACTIONS (1)
  - Drug reaction with eosinophilia and systemic symptoms [Recovered/Resolved]

NARRATIVE: CASE EVENT DATE: 20190312
